FAERS Safety Report 7169514-8 (Version None)
Quarter: 2010Q4

REPORT INFORMATION
  Report Type: 
  Country: None (occurrence: None)
  Receive Date: 20101217
  Receipt Date: 20101207
  Transmission Date: 20110411
  Serious: Yes (Other)
  Sender: FDA-Public Use
  Company Number: BR-PFIZER INC-2010173480

PATIENT
  Sex: Female

DRUGS (7)
  1. ATLANSIL [Suspect]
     Indication: CARDIAC DISORDER
     Dosage: 200 MG, 1X/DAY
     Route: 048
  2. ATLANSIL [Suspect]
     Dosage: 100 MG, UNK
  3. BENERVA [Concomitant]
     Dosage: UNK
     Dates: start: 20090101
  4. VENLAFAXINE HYDROCHLORIDE [Concomitant]
     Dosage: UNK
     Dates: start: 20090101
  5. PANTOPRAZOLE [Concomitant]
     Dosage: UNK
     Dates: start: 20080101
  6. ACETYLSALICYLIC ACID [Concomitant]
     Dosage: UNK
     Dates: start: 20080101
  7. ROSUVASTATIN [Concomitant]
     Dosage: UNK
     Dates: start: 20080101

REACTIONS (13)
  - BALANCE DISORDER [None]
  - BLOOD PRESSURE FLUCTUATION [None]
  - BODY HEIGHT DECREASED [None]
  - BURNING SENSATION [None]
  - CARDIOVASCULAR DISORDER [None]
  - DIZZINESS [None]
  - FEELING ABNORMAL [None]
  - JOINT SWELLING [None]
  - PRURITUS GENERALISED [None]
  - PYREXIA [None]
  - SKIN DISORDER [None]
  - VASCULAR OCCLUSION [None]
  - WEIGHT DECREASED [None]
